FAERS Safety Report 6403511-2 (Version None)
Quarter: 2009Q4

REPORT INFORMATION
  Report Type: 
  Country: None (occurrence: None)
  Receive Date: 20091016
  Receipt Date: 20091006
  Transmission Date: 20100525
  Serious: Yes (Other)
  Sender: FDA-Public Use
  Company Number: JP-PFIZER INC-2009281687

PATIENT
  Age: 46 Year

DRUGS (8)
  1. SOLANAX [Suspect]
     Indication: ANXIETY DISORDER
     Dosage: UNK
     Route: 048
  2. ZOLOFT [Suspect]
     Indication: DEPRESSION
     Dosage: UNK
     Route: 048
  3. ZOLOFT [Suspect]
     Indication: PANIC DISORDER
  4. DEPAS [Suspect]
     Indication: ANXIETY DISORDER
     Dosage: UNK
     Route: 048
  5. MYSLEE [Suspect]
     Indication: INSOMNIA
     Dosage: UNK
     Route: 048
  6. TRAZODONE [Suspect]
     Indication: INSOMNIA
     Dosage: UNK
     Route: 048
  7. BENZALIN [Suspect]
     Indication: INSOMNIA
     Dosage: UNK
     Route: 048
  8. ALCOHOL [Suspect]

REACTIONS (2)
  - ANTEROGRADE AMNESIA [None]
  - SEXUAL ABUSE [None]
